FAERS Safety Report 20325499 (Version 1)
Quarter: 2022Q1

REPORT INFORMATION
  Report Type: Spontaneous
  Country: CA (occurrence: None)
  Receive Date: 20220112
  Receipt Date: 20220112
  Transmission Date: 20220423
  Serious: Yes (Other)
  Sender: FDA-Public Use
  Company Number: CA-ROCHE-2998109

PATIENT
  Sex: Female

DRUGS (7)
  1. RITUXIMAB [Suspect]
     Active Substance: RITUXIMAB
     Indication: Rheumatoid arthritis
     Route: 041
  2. ACETAMINOPHEN [Concomitant]
     Active Substance: ACETAMINOPHEN
     Indication: Premedication
     Route: 048
  3. CALCIUM ACETYLSALICYLATE [Concomitant]
  4. DIPHENHYDRAMINE [Concomitant]
     Active Substance: DIPHENHYDRAMINE
     Indication: Premedication
     Route: 048
  5. FOLIC ACID [Concomitant]
     Active Substance: FOLIC ACID
  6. MEDROXYPROGESTERONE ACETATE [Concomitant]
     Active Substance: MEDROXYPROGESTERONE ACETATE
  7. SULFASALAZINE [Concomitant]
     Active Substance: SULFASALAZINE

REACTIONS (4)
  - Chest pain [Unknown]
  - Cough [Unknown]
  - Pneumonia [Unknown]
  - Sputum discoloured [Unknown]
